FAERS Safety Report 5002622-6 (Version None)
Quarter: 2006Q2

REPORT INFORMATION
  Report Type: 
  Country: None (occurrence: None)
  Receive Date: 20060510
  Receipt Date: 20060426
  Transmission Date: 20061013
  Serious: Yes (Other)
  Sender: FDA-Public Use
  Company Number: FR-2004-026654

PATIENT
  Age: 36 Year
  Sex: Male
  Weight: 68 kg

DRUGS (5)
  1. CAMPATH [Suspect]
     Indication: ACUTE LYMPHOCYTIC LEUKAEMIA
     Dosage: SEE IMAGE
     Route: 042
     Dates: start: 20040512, end: 20040512
  2. CAMPATH [Suspect]
     Indication: ACUTE LYMPHOCYTIC LEUKAEMIA
     Dosage: SEE IMAGE
     Route: 042
     Dates: start: 20040514, end: 20040514
  3. CAMPATH [Suspect]
     Indication: ACUTE LYMPHOCYTIC LEUKAEMIA
     Dosage: SEE IMAGE
     Route: 042
     Dates: start: 20040517, end: 20040517
  4. CAMPATH [Suspect]
     Indication: ACUTE LYMPHOCYTIC LEUKAEMIA
     Dosage: SEE IMAGE
     Route: 042
     Dates: start: 20040519
  5. GLEEVEC [Concomitant]

REACTIONS (6)
  - ACCIDENTAL OVERDOSE [None]
  - CAUDA EQUINA SYNDROME [None]
  - CONDITION AGGRAVATED [None]
  - MYELITIS [None]
  - NEUROTOXICITY [None]
  - POLYNEUROPATHY [None]
